FAERS Safety Report 7410621-X (Version None)
Quarter: 2011Q1

REPORT INFORMATION
  Report Type: 
  Country: None (occurrence: None)
  Receive Date: 20110302
  Receipt Date: 20110118
  Transmission Date: 20110831
  Serious: No
  Sender: FDA-Public Use
  Company Number: 025733

PATIENT
  Sex: Female
  Weight: 54.4 kg

DRUGS (18)
  1. CYCLOBENZAPRINE [Concomitant]
  2. NIASPAN [Concomitant]
  3. TIZANIDINE [Concomitant]
  4. MEDROL [Concomitant]
  5. CALCITRIOL [Concomitant]
  6. ISOSORBIDE MONONITRATE [Concomitant]
  7. MICARDIS [Concomitant]
  8. ASPIRIN [Concomitant]
  9. CELEBREX [Concomitant]
  10. ALTACE [Concomitant]
  11. GABAPENTIN [Concomitant]
  12. HYDROCODONE [Concomitant]
  13. METHYLPREDNISOLONE [Concomitant]
  14. VYTORIN [Concomitant]
  15. CIMZIA [Suspect]
     Indication: RHEUMATOID ARTHRITIS
     Dosage: 200 MG 1X/2 WEEKS ORAL
     Route: 048
     Dates: start: 20101007
  16. DICYCLOMINE [Concomitant]
  17. BUDEPRION [Concomitant]
  18. CARVEDILOL [Concomitant]

REACTIONS (2)
  - ORAL PAIN [None]
  - DYSPHAGIA [None]
